FAERS Safety Report 11008461 (Version 1)
Quarter: 2015Q2

REPORT INFORMATION
  Report Type: Spontaneous
  Country: US (occurrence: US)
  Receive Date: 20150410
  Receipt Date: 20150410
  Transmission Date: 20150821
  Serious: Yes (Other)
  Sender: FDA-Public Use
  Company Number: US-AMGEN-USASP2015034038

PATIENT
  Age: 41 Year
  Sex: Male

DRUGS (1)
  1. ENBREL [Suspect]
     Active Substance: ETANERCEPT
     Indication: PSORIATIC ARTHROPATHY
     Dosage: 50 MG, QWK
     Route: 065
     Dates: start: 20150301

REACTIONS (6)
  - Arthralgia [Not Recovered/Not Resolved]
  - Abdominal pain lower [Recovered/Resolved]
  - Musculoskeletal pain [Not Recovered/Not Resolved]
  - Appendicectomy [Recovered/Resolved]
  - Abdominal discomfort [Recovered/Resolved]
  - Feeling abnormal [Recovered/Resolved]

NARRATIVE: CASE EVENT DATE: 20150327
